FAERS Safety Report 12343685 (Version 2)
Quarter: 2019Q3

REPORT INFORMATION
  Report Type: Spontaneous
  Country: US (occurrence: US)
  Receive Date: 20160506
  Receipt Date: 20190903
  Transmission Date: 20191004
  Serious: Yes (Other)
  Sender: FDA-Public Use
  Company Number: US-BIOGEN-2016BI00224407

PATIENT
  Age: 46 Year
  Sex: Male

DRUGS (1)
  1. TYSABRI [Suspect]
     Active Substance: NATALIZUMAB
     Indication: MULTIPLE SCLEROSIS
     Dosage: INFUSED OVER 1 HOUR
     Route: 042
     Dates: start: 20140416, end: 20160422

REACTIONS (8)
  - Fatigue [Unknown]
  - Visual impairment [Not Recovered/Not Resolved]
  - Mobility decreased [Unknown]
  - Confusional state [Not Recovered/Not Resolved]
  - Cognitive disorder [Not Recovered/Not Resolved]
  - Blindness [Unknown]
  - Memory impairment [Recovered/Resolved]
  - Mental fatigue [Unknown]

NARRATIVE: CASE EVENT DATE: 20160415
